FAERS Safety Report 25913458 (Version 1)
Quarter: 2025Q4

REPORT INFORMATION
  Report Type: Spontaneous
  Country: JP (occurrence: JP)
  Receive Date: 20251013
  Receipt Date: 20251013
  Transmission Date: 20260118
  Serious: Yes (Other)
  Sender: PFIZER
  Company Number: JP-PFIZER INC-PV202500119247

PATIENT
  Age: 46 Year
  Sex: Female

DRUGS (3)
  1. METHYLPREDNISOLONE SODIUM SUCCINATE [Suspect]
     Active Substance: METHYLPREDNISOLONE SODIUM SUCCINATE
     Indication: Nasopharyngitis
     Dosage: 125 MG, DAILY
  2. ELTROMBOPAG [Suspect]
     Active Substance: ELTROMBOPAG
     Dosage: UNK
  3. GARENOXACIN [Concomitant]
     Active Substance: GARENOXACIN
     Indication: Nasopharyngitis
     Dosage: UNK

REACTIONS (4)
  - Platelet count increased [Unknown]
  - Splenic infarction [Unknown]
  - Splenomegaly [Unknown]
  - Off label use [Unknown]
